FAERS Safety Report 9121685 (Version 3)
Quarter: 2013Q1

REPORT INFORMATION
  Report Type: Spontaneous
  Country: US (occurrence: US)
  Receive Date: 20130227
  Receipt Date: 20130325
  Transmission Date: 20140127
  Serious: No
  Sender: FDA-Public Use
  Company Number: US-BIOGENIDEC-2013BI016531

PATIENT
  Age: 35 None
  Sex: Female

DRUGS (1)
  1. TYSABRI [Suspect]
     Indication: MULTIPLE SCLEROSIS
     Route: 042
     Dates: start: 20120328

REACTIONS (17)
  - Confusional state [Not Recovered/Not Resolved]
  - Urinary incontinence [Not Recovered/Not Resolved]
  - Drug dose omission [Recovered/Resolved]
  - Fear of death [Not Recovered/Not Resolved]
  - Fear [Not Recovered/Not Resolved]
  - Weight increased [Not Recovered/Not Resolved]
  - Demyelination [Not Recovered/Not Resolved]
  - Loss of control of legs [Not Recovered/Not Resolved]
  - Catheter site pain [Not Recovered/Not Resolved]
  - Chromaturia [Unknown]
  - Urine odour abnormal [Recovered/Resolved]
  - Memory impairment [Not Recovered/Not Resolved]
  - Overdose [Recovered/Resolved]
  - Muscle spasms [Unknown]
  - Constipation [Unknown]
  - Fatigue [Recovered/Resolved]
  - Cystitis [Not Recovered/Not Resolved]
